FAERS Safety Report 24083992 (Version 2)
Quarter: 2024Q3

REPORT INFORMATION
  Report Type: Spontaneous
  Country: US (occurrence: None)
  Receive Date: 20240712
  Receipt Date: 20240717
  Transmission Date: 20241016
  Serious: Yes (Other)
  Sender: ASTRAZENECA
  Company Number: 2024A154188

PATIENT

DRUGS (10)
  1. FASENRA [Suspect]
     Active Substance: BENRALIZUMAB
     Route: 058
  2. BENADRYL [Concomitant]
     Active Substance: DIPHENHYDRAMINE HYDROCHLORIDE
  3. CROMOLYN SODIUM [Concomitant]
     Active Substance: CROMOLYN SODIUM
  4. EPIPEN [Concomitant]
     Active Substance: EPINEPHRINE
  5. FAMOTIDINE [Concomitant]
     Active Substance: FAMOTIDINE
  6. AIRSUPRA [Concomitant]
     Active Substance: ALBUTEROL SULFATE\BUDESONIDE
  7. SINGULAIR [Concomitant]
     Active Substance: MONTELUKAST SODIUM
  8. SYMBICORT [Concomitant]
     Active Substance: BUDESONIDE\FORMOTEROL FUMARATE DIHYDRATE
     Dosage: UNKNOWN UNKNOWN
  9. XOLAIR [Concomitant]
     Active Substance: OMALIZUMAB
  10. CETIERIZNE [Concomitant]

REACTIONS (5)
  - Dyspnoea [Unknown]
  - Urticaria [Unknown]
  - Blood pressure decreased [Unknown]
  - Anaphylactic reaction [Unknown]
  - Dizziness [Unknown]
